FAERS Safety Report 5526188-7 (Version None)
Quarter: 2007Q4

REPORT INFORMATION
  Report Type: 
  Country: None (occurrence: None)
  Receive Date: 20071120
  Receipt Date: 20071109
  Transmission Date: 20080405
  Serious: Yes (Life-Threatening, Hospitalization, Other)
  Sender: FDA-Public Use
  Company Number: 2007RL000483

PATIENT
  Age: 78 Year
  Sex: Male

DRUGS (9)
  1. LOVAZA [Suspect]
     Indication: DRUG USE FOR UNKNOWN INDICATION
     Dosage: 1 GM;PO
     Route: 048
     Dates: start: 20040226, end: 20070726
  2. LANTUS [Suspect]
     Indication: DIABETES MELLITUS
     Dosage: SC
     Route: 058
     Dates: start: 20040226
  3. OPTIPEN INSULIN APPLICATOR: REGIMEN #1 (NO PREF. NAME) [Suspect]
     Indication: DIABETES MELLITUS
  4. OMEPRAZOLE [Concomitant]
  5. NITRATES (NOS) [Concomitant]
  6. METOPROLOL [Concomitant]
  7. SIMVASTATIN [Concomitant]
  8. ALLOPURINOL [Concomitant]
  9. RAMIPRIL [Concomitant]

REACTIONS (8)
  - BRAIN OEDEMA [None]
  - CEREBRAL HAEMORRHAGE TRAUMATIC [None]
  - CEREBRAL HYGROMA [None]
  - DIZZINESS [None]
  - FALL [None]
  - SPEECH DISORDER [None]
  - SUBARACHNOID HAEMORRHAGE [None]
  - SUBDURAL HAEMATOMA [None]
